FAERS Safety Report 16309699 (Version 2)
Quarter: 2019Q2

REPORT INFORMATION
  Report Type: Report from Study
  Country: US (occurrence: US)
  Receive Date: 20190514
  Receipt Date: 20190627
  Transmission Date: 20190711
  Serious: Yes (Death, Life-Threatening, Other)
  Sender: FDA-Public Use
  Company Number: US-BRISTOL-MYERS SQUIBB COMPANY-BMS-2019-046864

PATIENT
  Age: 59 Year
  Sex: Male

DRUGS (11)
  1. INSULIN LISPRO [Concomitant]
     Active Substance: INSULIN LISPRO
     Indication: PRODUCT USED FOR UNKNOWN INDICATION
     Dosage: UNK UNK, Q4H
     Route: 058
     Dates: start: 20190128
  2. HEPARIN [Concomitant]
     Active Substance: HEPARIN SODIUM
     Indication: PRODUCT USED FOR UNKNOWN INDICATION
     Dosage: 5000 UNIT, Q8H
     Route: 058
     Dates: start: 20190205
  3. ACETAMINOPHEN. [Concomitant]
     Active Substance: ACETAMINOPHEN
     Indication: PRODUCT USED FOR UNKNOWN INDICATION
     Dosage: 650 MILLIGRAM, Q6H
     Route: 045
  4. FENTANYL. [Concomitant]
     Active Substance: FENTANYL
     Indication: PRODUCT USED FOR UNKNOWN INDICATION
     Dosage: 50 MICROGRAM, Q4H
     Route: 042
  5. PROTONIX [OMEPRAZOLE] [Concomitant]
     Active Substance: OMEPRAZOLE
     Indication: PRODUCT USED FOR UNKNOWN INDICATION
     Dosage: 40 MILLIGRAM, QD
     Route: 045
     Dates: start: 20190202
  6. HYDRALAZINE [Concomitant]
     Active Substance: HYDRALAZINE HYDROCHLORIDE
     Indication: PRODUCT USED FOR UNKNOWN INDICATION
     Dosage: 10 MILLIGRAM, Q4H
     Route: 042
  7. MAGNESIUM OXIDE. [Concomitant]
     Active Substance: MAGNESIUM OXIDE
     Indication: PRODUCT USED FOR UNKNOWN INDICATION
     Dosage: 400 MILLIGRAM, Q4H
     Route: 048
     Dates: start: 20190205
  8. CETUXIMAB. [Suspect]
     Active Substance: CETUXIMAB
     Indication: OROPHARYNGEAL CANCER
     Dosage: 1 DOSAGE FORM, Q2WK
     Route: 042
     Dates: start: 20181219
  9. HALOPERIDOL. [Concomitant]
     Active Substance: HALOPERIDOL
     Indication: PRODUCT USED FOR UNKNOWN INDICATION
     Dosage: 5 MILLIGRAM, Q6H
     Route: 042
  10. NIVOLUMAB [Suspect]
     Active Substance: NIVOLUMAB
     Indication: OROPHARYNGEAL CANCER
     Dosage: 1 DOSAGE FORM, Q2WK
     Route: 042
     Dates: start: 20181219
  11. ALBUTEROL HFA [Concomitant]
     Active Substance: ALBUTEROL SULFATE
     Indication: PRODUCT USED FOR UNKNOWN INDICATION
     Dosage: UNK UNK, Q4H

REACTIONS (3)
  - Pneumonia [Fatal]
  - Respiratory failure [Unknown]
  - Pulmonary cavitation [Unknown]

NARRATIVE: CASE EVENT DATE: 20190129
